FAERS Safety Report 12987299 (Version 2)
Quarter: 2016Q4

REPORT INFORMATION
  Report Type: Spontaneous
  Country: US (occurrence: US)
  Receive Date: 20161130
  Receipt Date: 20161205
  Transmission Date: 20170207
  Serious: Yes (Death)
  Sender: FDA-Public Use
  Company Number: US-PFIZER INC-2016551552

PATIENT
  Age: 14 Month
  Sex: Female
  Weight: 12 kg

DRUGS (1)
  1. ADALAT [Suspect]
     Active Substance: NIFEDIPINE
     Dosage: 10 MG, UNK

REACTIONS (2)
  - Accidental exposure to product by child [Fatal]
  - Cardiac arrest [Fatal]
